FAERS Safety Report 19860573 (Version 1)
Quarter: 2021Q3

REPORT INFORMATION
  Report Type: Report from Study
  Country: US (occurrence: US)
  Receive Date: 20210921
  Receipt Date: 20210921
  Transmission Date: 20211014
  Serious: Yes (Other)
  Sender: FDA-Public Use
  Company Number: US-GLAXOSMITHKLINE-US2020AMR138601

PATIENT
  Sex: Female
  Weight: 49 kg

DRUGS (7)
  1. NIRAPARIB [Suspect]
     Active Substance: NIRAPARIB
     Indication: MALIGNANT PERITONEAL NEOPLASM
     Dosage: 200 MG, QD
     Route: 065
  2. NIRAPARIB [Suspect]
     Active Substance: NIRAPARIB
     Dosage: 200 MG, QD
     Route: 048
  3. NIRAPARIB [Suspect]
     Active Substance: NIRAPARIB
     Dosage: 200 MG, QD
     Route: 048
  4. NIRAPARIB [Suspect]
     Active Substance: NIRAPARIB
     Dosage: 200 MG, QD
     Route: 048
  5. NIRAPARIB [Suspect]
     Active Substance: NIRAPARIB
     Dosage: 200 MG, QD
     Route: 065
  6. NIRAPARIB [Suspect]
     Active Substance: NIRAPARIB
     Dosage: 200 MG, QD
     Route: 048
  7. NIRAPARIB [Suspect]
     Active Substance: NIRAPARIB
     Indication: OVARIAN CANCER
     Dosage: 200 MG, QD
     Route: 065
     Dates: start: 20200713

REACTIONS (17)
  - Nausea [Recovering/Resolving]
  - Sleep disorder [Not Recovered/Not Resolved]
  - Cataract operation [Unknown]
  - Ovarian cancer metastatic [Unknown]
  - Gastrooesophageal reflux disease [Not Recovered/Not Resolved]
  - Blood pressure abnormal [Recovered/Resolved]
  - Platelet count decreased [Not Recovered/Not Resolved]
  - Condition aggravated [Unknown]
  - Insomnia [Unknown]
  - White blood cell count decreased [Unknown]
  - Vomiting [Unknown]
  - Somnolence [Unknown]
  - Metastases to lung [Unknown]
  - Muscle spasms [Not Recovered/Not Resolved]
  - Blood pressure increased [Recovered/Resolved]
  - Arteriosclerosis [Unknown]
  - Headache [Recovered/Resolved]
